FAERS Safety Report 9939154 (Version 1)
Quarter: 2014Q1

REPORT INFORMATION
  Report Type: Report from Study
  Country: US (occurrence: US)
  Receive Date: 20140303
  Receipt Date: 20140303
  Transmission Date: 20141002
  Serious: No
  Sender: FDA-Public Use
  Company Number: US-ABBVIE-13P-163-1032889-00

PATIENT
  Age: 64 Year
  Sex: Female

DRUGS (6)
  1. HUMIRA [Suspect]
     Indication: PSORIASIS
     Dates: start: 20121205
  2. ROPINOROLE [Concomitant]
     Indication: RESTLESS LEGS SYNDROME
     Dosage: EVERY NIGHT
  3. BUPROPION HCL ER [Concomitant]
     Indication: SMOKING CESSATION THERAPY
  4. SIMVASTATIN [Concomitant]
     Indication: BLOOD CHOLESTEROL
  5. METHYLTESTOSTERONE W/ ESTROGEN [Concomitant]
     Indication: HORMONE REPLACEMENT THERAPY
     Dosage: 0.625/1.25MG
  6. LEVOTHYROXINE [Concomitant]
     Indication: THYROID DISORDER

REACTIONS (2)
  - Alopecia [Not Recovered/Not Resolved]
  - Psoriasis [Not Recovered/Not Resolved]
